FAERS Safety Report 20015868 (Version 1)
Quarter: 2021Q4

REPORT INFORMATION
  Report Type: Spontaneous
  Country: US (occurrence: None)
  Receive Date: 20211102
  Receipt Date: 20211102
  Transmission Date: 20220303
  Serious: Yes (Other)
  Sender: FDA-Public Use
  Company Number: None

PATIENT
  Age: 14 Year
  Sex: Female
  Weight: 41.7 kg

DRUGS (4)
  1. BIKTARVY [Suspect]
     Active Substance: BICTEGRAVIR SODIUM\EMTRICITABINE\TENOFOVIR ALAFENAMIDE FUMARATE
     Dosage: FREQUENCY : DAILY;?
     Route: 048
     Dates: start: 20211020, end: 20211028
  2. GABAPENTIN [Concomitant]
     Active Substance: GABAPENTIN
  3. TRAZODONE [Concomitant]
     Active Substance: TRAZODONE HYDROCHLORIDE
  4. KETOCONAZOLE [Concomitant]
     Active Substance: KETOCONAZOLE

REACTIONS (5)
  - Palpitations [None]
  - Insomnia [None]
  - Headache [None]
  - Abdominal discomfort [None]
  - Dyspnoea [None]

NARRATIVE: CASE EVENT DATE: 20211020
